FAERS Safety Report 9160557 (Version 2)
Quarter: 2013Q1

REPORT INFORMATION
  Report Type: Spontaneous
  Country: IE (occurrence: None)
  Receive Date: 20130215
  Receipt Date: 20130228
  Transmission Date: 20140127
  Serious: Yes (Life-Threatening)
  Sender: FDA-Public Use
  Company Number: MPS1-1000928

PATIENT
  Age: 36 Year
  Sex: Male

DRUGS (1)
  1. ALDURAZYME [Suspect]
     Indication: MUCOPOLYSACCHARIDOSIS I
     Dosage: 10 VIALS, QW, INTRAVENOUS
     Route: 042
     Dates: start: 20030423

REACTIONS (1)
  - Myocardial infarction [None]
